FAERS Safety Report 17687805 (Version 1)
Quarter: 2020Q2

REPORT INFORMATION
  Report Type: Spontaneous
  Country: JP (occurrence: JP)
  Receive Date: 20200421
  Receipt Date: 20200421
  Transmission Date: 20200714
  Serious: Yes (Other)
  Sender: FDA-Public Use
  Company Number: NVSC2020JP104239

PATIENT
  Age: 60 Year
  Sex: Male

DRUGS (3)
  1. GEFITINIB. [Concomitant]
     Active Substance: GEFITINIB
     Indication: CHRONIC MYELOID LEUKAEMIA
     Dosage: UNK
     Route: 065
  2. NILOTINIB [Suspect]
     Active Substance: NILOTINIB
     Dosage: 400 MG, QD
     Route: 065
  3. NILOTINIB [Suspect]
     Active Substance: NILOTINIB
     Indication: CHRONIC MYELOID LEUKAEMIA
     Dosage: 600 MG, QD
     Route: 065

REACTIONS (4)
  - Rash [Unknown]
  - Second primary malignancy [Unknown]
  - Diarrhoea [Unknown]
  - Lung adenocarcinoma [Unknown]
